FAERS Safety Report 5494397-1 (Version None)
Quarter: 2007Q4

REPORT INFORMATION
  Report Type: 
  Country: None (occurrence: None)
  Receive Date: 20071015
  Receipt Date: 20070604
  Transmission Date: 20080405
  Serious: Yes (Other)
  Sender: FDA-Public Use
  Company Number: S07-USA-02417-01

PATIENT
  Age: 64 Year
  Sex: Female

DRUGS (2)
  1. LEXAPRO [Suspect]
     Indication: DEPRESSION
     Dosage: 5 MG QD PO
     Route: 048
     Dates: start: 20060101, end: 20060101
  2. LEXAPRO [Suspect]
     Indication: DEPRESSION
     Dosage: 2.5MG QD PO
     Route: 048
     Dates: start: 20060101, end: 20060101

REACTIONS (3)
  - INSOMNIA [None]
  - RESTLESSNESS [None]
  - SUICIDAL IDEATION [None]
